FAERS Safety Report 10587340 (Version 2)
Quarter: 2014Q4

REPORT INFORMATION
  Report Type: Spontaneous
  Country: JP (occurrence: JP)
  Receive Date: 20141117
  Receipt Date: 20141117
  Transmission Date: 20150529
  Serious: Yes (Other)
  Sender: FDA-Public Use
  Company Number: PHHY2014JP132213

PATIENT
  Age: 66 Year
  Sex: Male
  Weight: 66 kg

DRUGS (3)
  1. ULTIBRO BREEZHALER [Suspect]
     Active Substance: GLYCOPYRRONIUM\INDACATEROL
     Indication: CHRONIC OBSTRUCTIVE PULMONARY DISEASE
     Dosage: 1 DF, QD
     Route: 055
     Dates: start: 20140507, end: 20141013
  2. ULTIBRO BREEZHALER [Suspect]
     Active Substance: GLYCOPYRRONIUM\INDACATEROL
     Dosage: BIW
     Route: 055
     Dates: end: 20141014
  3. DIGOSIN [Concomitant]
     Active Substance: DIGOXIN
     Indication: TACHYCARDIA
     Dosage: 0.25 MG, UNK
     Route: 048
     Dates: start: 20140714, end: 20140806

REACTIONS (5)
  - Ventricular extrasystoles [Not Recovered/Not Resolved]
  - Heart rate irregular [Unknown]
  - Electrocardiogram ambulatory abnormal [Unknown]
  - Palpitations [Unknown]
  - Heart rate decreased [Unknown]

NARRATIVE: CASE EVENT DATE: 20140714
